FAERS Safety Report 24532857 (Version 1)
Quarter: 2024Q4

REPORT INFORMATION
  Report Type: Report from Study
  Country: US (occurrence: US)
  Receive Date: 20241022
  Receipt Date: 20241022
  Transmission Date: 20250115
  Serious: Yes (Other)
  Sender: ALEXION PHARMACEUTICALS
  Company Number: US-AstraZeneca-2024A212615

PATIENT
  Age: 69 Year

DRUGS (32)
  1. LYNPARZA [Suspect]
     Active Substance: OLAPARIB
     Indication: Peritoneal cancer index
     Dosage: 300 MILLIGRAM, BID
  2. LYNPARZA [Suspect]
     Active Substance: OLAPARIB
     Dosage: 300 MILLIGRAM, BID
  3. LYNPARZA [Suspect]
     Active Substance: OLAPARIB
     Dosage: 300 MILLIGRAM, BID
  4. LYNPARZA [Suspect]
     Active Substance: OLAPARIB
     Dosage: 300 MILLIGRAM, BID
  5. LYNPARZA [Suspect]
     Active Substance: OLAPARIB
     Dosage: 150 MILLIGRAM, QD
  6. LYNPARZA [Suspect]
     Active Substance: OLAPARIB
     Dosage: 150 MILLIGRAM, QD
  7. LYNPARZA [Suspect]
     Active Substance: OLAPARIB
     Dosage: 150 MILLIGRAM, QD
  8. LYNPARZA [Suspect]
     Active Substance: OLAPARIB
     Dosage: 150 MILLIGRAM, QD
  9. LYNPARZA [Suspect]
     Active Substance: OLAPARIB
     Dosage: 150 MILLIGRAM, QD
  10. LYNPARZA [Suspect]
     Active Substance: OLAPARIB
     Dosage: 150 MILLIGRAM, QD
  11. LYNPARZA [Suspect]
     Active Substance: OLAPARIB
     Dosage: 150 MILLIGRAM, QD
  12. LYNPARZA [Suspect]
     Active Substance: OLAPARIB
     Dosage: 150 MILLIGRAM, QD
  13. LYNPARZA [Suspect]
     Active Substance: OLAPARIB
     Dosage: 300 MILLIGRAM, BID
  14. LYNPARZA [Suspect]
     Active Substance: OLAPARIB
     Dosage: 300 MILLIGRAM, BID
  15. LYNPARZA [Suspect]
     Active Substance: OLAPARIB
     Dosage: 300 MILLIGRAM, BID
  16. LYNPARZA [Suspect]
     Active Substance: OLAPARIB
     Dosage: 300 MILLIGRAM, BID
  17. LYNPARZA [Suspect]
     Active Substance: OLAPARIB
     Dosage: 300 MILLIGRAM, QD
  18. LYNPARZA [Suspect]
     Active Substance: OLAPARIB
     Dosage: 300 MILLIGRAM, QD
  19. LYNPARZA [Suspect]
     Active Substance: OLAPARIB
     Dosage: 300 MILLIGRAM, QD
  20. LYNPARZA [Suspect]
     Active Substance: OLAPARIB
     Dosage: 300 MILLIGRAM, QD
  21. LYNPARZA [Suspect]
     Active Substance: OLAPARIB
     Dosage: 450 MILLIGRAM, QD
  22. LYNPARZA [Suspect]
     Active Substance: OLAPARIB
     Dosage: 450 MILLIGRAM, QD
  23. LYNPARZA [Suspect]
     Active Substance: OLAPARIB
     Dosage: 450 MILLIGRAM, QD
  24. LYNPARZA [Suspect]
     Active Substance: OLAPARIB
     Dosage: 450 MILLIGRAM, QD
  25. LYNPARZA [Suspect]
     Active Substance: OLAPARIB
     Dosage: 150 MILLIGRAM, BID
  26. LYNPARZA [Suspect]
     Active Substance: OLAPARIB
     Dosage: 150 MILLIGRAM, BID
  27. LYNPARZA [Suspect]
     Active Substance: OLAPARIB
     Dosage: 150 MILLIGRAM, BID
  28. LYNPARZA [Suspect]
     Active Substance: OLAPARIB
     Dosage: 150 MILLIGRAM, BID
  29. LYNPARZA [Suspect]
     Active Substance: OLAPARIB
     Dosage: 450 MILLIGRAM, QD
  30. LYNPARZA [Suspect]
     Active Substance: OLAPARIB
     Dosage: 450 MILLIGRAM, QD
  31. LYNPARZA [Suspect]
     Active Substance: OLAPARIB
     Dosage: 450 MILLIGRAM, QD
  32. LYNPARZA [Suspect]
     Active Substance: OLAPARIB
     Dosage: 450 MILLIGRAM, QD

REACTIONS (4)
  - Vaginal prolapse [Recovered/Resolved]
  - Nausea [Not Recovered/Not Resolved]
  - Fatigue [Not Recovered/Not Resolved]
  - Underdose [Unknown]
